FAERS Safety Report 25390394 (Version 2)
Quarter: 2025Q3

REPORT INFORMATION
  Report Type: Spontaneous
  Country: US (occurrence: US)
  Receive Date: 20250603
  Receipt Date: 20250814
  Transmission Date: 20251020
  Serious: Yes (Hospitalization)
  Sender: GRIFOLS
  Company Number: US-IGSA-BIG0035572

PATIENT
  Age: 40 Year
  Sex: Female
  Weight: 113.38 kg

DRUGS (3)
  1. PROLASTIN-C LIQUID [Suspect]
     Active Substance: .ALPHA.1-PROTEINASE INHIBITOR HUMAN
     Indication: Alpha-1 antitrypsin deficiency
     Dosage: 7357 MILLIGRAM, Q.WK.
     Route: 042
  2. PROLASTIN-C LIQUID [Suspect]
     Active Substance: .ALPHA.1-PROTEINASE INHIBITOR HUMAN
     Dosage: 7357 MILLIGRAM, Q.WK.
     Route: 042
  3. DOXYCYCLINE HYCLATE [Concomitant]
     Active Substance: DOXYCYCLINE HYCLATE
     Route: 048

REACTIONS (12)
  - Dyspnoea [Recovering/Resolving]
  - Swelling [Unknown]
  - Rash macular [Unknown]
  - Headache [Unknown]
  - Hypoaesthesia [Unknown]
  - Blood pressure increased [Recovering/Resolving]
  - Rash [Unknown]
  - Fatigue [Unknown]
  - Tremor [Unknown]
  - Chest pain [Unknown]
  - Weight decreased [Unknown]
  - Chest discomfort [Unknown]

NARRATIVE: CASE EVENT DATE: 20250501
